FAERS Safety Report 22134979 (Version 1)
Quarter: 2023Q1

REPORT INFORMATION
  Report Type: Spontaneous
  Country: US (occurrence: None)
  Receive Date: 20230323
  Receipt Date: 20230323
  Transmission Date: 20230417
  Serious: Yes (unspecified)
  Sender: FDA-Public Use
  Company Number: None

PATIENT
  Age: 22 Year
  Sex: Male
  Weight: 78.9 kg

DRUGS (4)
  1. INFLECTRA [Suspect]
     Active Substance: INFLIXIMAB-DYYB
     Indication: Inflammatory bowel disease
     Dosage: OTHER FREQUENCY : ONE TIME INFUSION;?
     Route: 040
     Dates: start: 20230322, end: 20230322
  2. Diphenhydramine 25 mg IVP [Concomitant]
     Dates: start: 20230322, end: 20230322
  3. Hydrocortisone 100 mg IVP [Concomitant]
     Dates: start: 20230322, end: 20230322
  4. EpiPen adult 0.3 mg [Concomitant]
     Dates: start: 20230322, end: 20230322

REACTIONS (5)
  - Flushing [None]
  - Hyperhidrosis [None]
  - Throat irritation [None]
  - Cough [None]
  - Infusion related reaction [None]

NARRATIVE: CASE EVENT DATE: 20230322
